FAERS Safety Report 8807257 (Version 1)
Quarter: 2012Q4

REPORT INFORMATION
  Report Type: 
  Country: US (occurrence: US)
  Receive Date: 20120925
  Receipt Date: 20120925
  Transmission Date: 20130627
  Serious: Yes (Hospitalization)
  Sender: FDA-Public Use
  Company Number: US-GILEAD-2012-0061735

PATIENT
  Age: 77 Year
  Sex: Female

DRUGS (2)
  1. LETAIRIS [Suspect]
     Indication: PRODUCT USED FOR UNKNOWN INDICATION
     Dosage: 5 mg, UNK
     Route: 048
     Dates: start: 20120406
  2. LASIX                              /00032601/ [Concomitant]

REACTIONS (2)
  - Dyspnoea [Recovered/Resolved]
  - Fluid retention [Recovered/Resolved]
